FAERS Safety Report 13443091 (Version 1)
Quarter: 2017Q2

REPORT INFORMATION
  Report Type: Spontaneous
  Country: US (occurrence: US)
  Receive Date: 20170414
  Receipt Date: 20170414
  Transmission Date: 20170830
  Serious: Yes (Life-Threatening, Hospitalization, Other)
  Sender: FDA-Public Use
  Company Number: US-ASTRAZENECA-2017SE37413

PATIENT
  Age: 15475 Day
  Sex: Male
  Weight: 91.6 kg

DRUGS (9)
  1. SYMBICORT [Suspect]
     Active Substance: BUDESONIDE\FORMOTEROL FUMARATE DIHYDRATE
     Dosage: 160/4.5 MCG, 2 PUFFS TWO TIMES A DAY
     Route: 055
  2. SYMBICORT [Suspect]
     Active Substance: BUDESONIDE\FORMOTEROL FUMARATE DIHYDRATE
     Dosage: GENERIC, 160/4.5 MCG, 2 PUFFS TWO TIMES A DAY
     Route: 055
  3. PROVENTIL [Concomitant]
     Active Substance: ALBUTEROL
  4. EPZICOM [Concomitant]
     Active Substance: ABACAVIR SULFATE\LAMIVUDINE
  5. DEXILANT [Concomitant]
     Active Substance: DEXLANSOPRAZOLE
  6. ZESTRIL [Suspect]
     Active Substance: LISINOPRIL
     Route: 048
  7. FISH OIL [Concomitant]
     Active Substance: FISH OIL
  8. VENTOLIN HFA [Concomitant]
     Active Substance: ALBUTEROL SULFATE
  9. LYRICA [Suspect]
     Active Substance: PREGABALIN
     Dosage: 25.0MG UNKNOWN
     Route: 065

REACTIONS (19)
  - Pain [Recovering/Resolving]
  - Dizziness [Unknown]
  - Bronchiectasis [Unknown]
  - Diabetes mellitus inadequate control [Unknown]
  - Vision blurred [Unknown]
  - Arthritis [Unknown]
  - Weight decreased [Unknown]
  - Diabetic ketoacidosis [Unknown]
  - Rhinitis allergic [Unknown]
  - Visual impairment [Unknown]
  - Diabetic nephropathy [Unknown]
  - Renal failure [Unknown]
  - Blindness [Unknown]
  - Paraesthesia [Unknown]
  - Asthma [Unknown]
  - Hyperglycaemia [Recovering/Resolving]
  - Diabetes mellitus [Unknown]
  - Glucose tolerance impaired [Recovering/Resolving]
  - Hyperglycaemic hyperosmolar nonketotic syndrome [Unknown]

NARRATIVE: CASE EVENT DATE: 20130829
